FAERS Safety Report 24212498 (Version 1)
Quarter: 2024Q3

REPORT INFORMATION
  Report Type: Spontaneous
  Country: CN (occurrence: CN)
  Receive Date: 20240815
  Receipt Date: 20240815
  Transmission Date: 20241017
  Serious: Yes (Other)
  Sender: MITSUBISHI TANABE PHARMA
  Company Number: CN-MTPC-MTPC2024-0016831

PATIENT

DRUGS (2)
  1. EDARAVONE [Suspect]
     Active Substance: EDARAVONE
     Indication: Subarachnoid haemorrhage
     Route: 041
  2. NIMODIPINE [Concomitant]
     Active Substance: NIMODIPINE
     Route: 041

REACTIONS (1)
  - Subarachnoid haemorrhage [Unknown]
